FAERS Safety Report 4355856-8 (Version None)
Quarter: 2004Q2

REPORT INFORMATION
  Report Type: 
  Country: None (occurrence: None)
  Receive Date: 20040505
  Receipt Date: 20040422
  Transmission Date: 20050107
  Serious: Yes (Hospitalization, Other)
  Sender: FDA-Public Use
  Company Number: ITWYE716622APR04

PATIENT
  Age: 14 Year
  Sex: Male

DRUGS (11)
  1. RAPAMUNE [Suspect]
     Indication: RENAL TRANSPLANT
     Dosage: 2 MG 1X PER 1 DAY ORAL; 3 MG 1X PER 1 DAY ORAL; 2.5 MG 1X PER 1 DAY ORAL; 2 MG 1X PER DAY ORAL
     Route: 048
     Dates: start: 20031211, end: 20040212
  2. RAPAMUNE [Suspect]
     Indication: RENAL TRANSPLANT
     Dosage: 2 MG 1X PER 1 DAY ORAL; 3 MG 1X PER 1 DAY ORAL; 2.5 MG 1X PER 1 DAY ORAL; 2 MG 1X PER DAY ORAL
     Route: 048
     Dates: start: 20040213, end: 20040216
  3. RAPAMUNE [Suspect]
     Indication: RENAL TRANSPLANT
     Dosage: 2 MG 1X PER 1 DAY ORAL; 3 MG 1X PER 1 DAY ORAL; 2.5 MG 1X PER 1 DAY ORAL; 2 MG 1X PER DAY ORAL
     Route: 048
     Dates: start: 20040217, end: 20040315
  4. RAPAMUNE [Suspect]
     Indication: RENAL TRANSPLANT
     Dosage: 2 MG 1X PER 1 DAY ORAL; 3 MG 1X PER 1 DAY ORAL; 2.5 MG 1X PER 1 DAY ORAL; 2 MG 1X PER DAY ORAL
     Route: 048
     Dates: start: 20040316
  5. METHYLPREDNISOLONE [Concomitant]
  6. CYCLOSPORINE [Concomitant]
  7. ZOVIRAX [Concomitant]
  8. MYCOSTATIN [Concomitant]
  9. BACTRIM [Concomitant]
  10. ROCALTROL [Concomitant]
  11. EXOCIN (OFLOXACIN) [Concomitant]

REACTIONS (8)
  - BLOOD IMMUNOGLOBULIN M INCREASED [None]
  - DRUG TOXICITY [None]
  - HAEMATOCRIT DECREASED [None]
  - HAEMOGLOBIN DECREASED [None]
  - IMMUNOSUPPRESSANT DRUG LEVEL DECREASED [None]
  - RENAL FAILURE ACUTE [None]
  - RENAL INTERSTITIAL FIBROSIS [None]
  - RENAL TUBULAR DISORDER [None]
